FAERS Safety Report 21919206 (Version 1)
Quarter: 2023Q1

REPORT INFORMATION
  Report Type: Spontaneous
  Country: US (occurrence: US)
  Receive Date: 20230127
  Receipt Date: 20230127
  Transmission Date: 20230418
  Serious: Yes (Other)
  Sender: FDA-Public Use
  Company Number: US-Accord-297371

PATIENT
  Age: 67 Year
  Sex: Male
  Weight: 97.98 kg

DRUGS (17)
  1. BUSPIRONE HYDROCHLORIDE [Interacting]
     Active Substance: BUSPIRONE HYDROCHLORIDE
     Indication: Product used for unknown indication
  2. MIFEPRISTONE [Interacting]
     Active Substance: MIFEPRISTONE
     Indication: Cushing^s syndrome
     Dosage: QD
     Route: 048
     Dates: start: 20221215
  3. INSULIN GLARGINE [Interacting]
     Active Substance: INSULIN GLARGINE
     Indication: Product used for unknown indication
     Dates: end: 202212
  4. ATORVASTATIN [Concomitant]
     Active Substance: ATORVASTATIN
  5. DULOXETINE [Concomitant]
     Active Substance: DULOXETINE
  6. IBU [Concomitant]
     Active Substance: IBUPROFEN
  7. LOSARTAN [Concomitant]
     Active Substance: LOSARTAN
  8. MODAFINIL [Concomitant]
     Active Substance: MODAFINIL
  9. HYDROCODONE BITARTRATE AND ACETAMIN [Concomitant]
  10. SEMAGLUTIDE [Concomitant]
     Active Substance: SEMAGLUTIDE
  11. PREGABALIN [Concomitant]
     Active Substance: PREGABALIN
  12. SILDENAFIL [Concomitant]
     Active Substance: SILDENAFIL
  13. EMPAGLIFLOZIN, METFORMIN [Concomitant]
  14. NORCO [Concomitant]
     Active Substance: ACETAMINOPHEN\HYDROCODONE BITARTRATE
  15. SPIRONOLACTONE [Concomitant]
     Active Substance: SPIRONOLACTONE
  16. INSULIN GLARGINE [Interacting]
     Active Substance: INSULIN GLARGINE
     Indication: Product used for unknown indication
     Dosage: DECREASE
  17. INSULIN GLARGINE [Interacting]
     Active Substance: INSULIN GLARGINE
     Indication: Product used for unknown indication
     Dosage: 50 U

REACTIONS (11)
  - Blood glucose increased [Recovered/Resolved]
  - Blood glucose decreased [Unknown]
  - Feeling abnormal [Not Recovered/Not Resolved]
  - Eating disorder symptom [Unknown]
  - Withdrawal syndrome [Unknown]
  - Drug interaction [Unknown]
  - Nausea [Unknown]
  - Vomiting [Unknown]
  - Retching [Unknown]
  - Fatigue [Unknown]
  - Pain [Not Recovered/Not Resolved]

NARRATIVE: CASE EVENT DATE: 20221201
